FAERS Safety Report 7882059-2 (Version None)
Quarter: 2011Q4

REPORT INFORMATION
  Report Type: 
  Country: None (occurrence: None)
  Receive Date: 20111101
  Receipt Date: 20110607
  Transmission Date: 20120403
  Serious: No
  Sender: FDA-Public Use
  Company Number: US-AMGEN-USASP2011016501

PATIENT
  Age: 47 Year
  Sex: Female

DRUGS (8)
  1. FLEXERIL [Concomitant]
  2. METHOTREXATE [Concomitant]
  3. PROZAC [Concomitant]
  4. KLONOPIN [Concomitant]
  5. CLINORIL [Concomitant]
  6. ENBREL [Suspect]
     Indication: RHEUMATOID ARTHRITIS
     Dosage: 50 MG, QWK
     Dates: start: 20110318, end: 20110325
  7. LEVOTHYROXINE SODIUM [Concomitant]
  8. FOLIC ACID [Concomitant]

REACTIONS (5)
  - CHEST DISCOMFORT [None]
  - DYSPNOEA [None]
  - RASH PRURITIC [None]
  - SWELLING FACE [None]
  - RASH MACULAR [None]
